FAERS Safety Report 6893053-2 (Version None)
Quarter: 2010Q3

REPORT INFORMATION
  Report Type: 
  Country: None (occurrence: None)
  Receive Date: 20100731
  Receipt Date: 20090218
  Transmission Date: 20110219
  Serious: Yes (Death, Other)
  Sender: FDA-Public Use
  Company Number: US-PFIZER INC-2008092292

PATIENT
  Sex: Male
  Weight: 98.4 kg

DRUGS (3)
  1. CAMPTOSAR [Suspect]
     Indication: COLON CANCER METASTATIC
     Dosage: ON DAYS 1 AND 8, EVERY 3 WEEKS
     Dates: start: 20080331
  2. COUMADIN [Concomitant]
  3. CETUXIMAB [Concomitant]

REACTIONS (2)
  - PULMONARY EMBOLISM [None]
  - SUDDEN DEATH [None]
